FAERS Safety Report 6183768-6 (Version None)
Quarter: 2009Q2

REPORT INFORMATION
  Report Type: 
  Country: None (occurrence: None)
  Receive Date: 20090508
  Receipt Date: 20090204
  Transmission Date: 20091009
  Serious: No
  Sender: FDA-Public Use
  Company Number: A0766868A

PATIENT
  Age: 78 Year
  Sex: Male

DRUGS (2)
  1. ALTABAX [Suspect]
     Indication: WOUND
     Dosage: 1APP THREE TIMES PER DAY
     Route: 061
     Dates: start: 20090113, end: 20090201
  2. ANTIBIOTIC [Concomitant]
     Route: 048

REACTIONS (3)
  - APPLICATION SITE ERYTHEMA [None]
  - APPLICATION SITE IRRITATION [None]
  - RASH [None]
